FAERS Safety Report 8354474-4 (Version None)
Quarter: 2012Q2

REPORT INFORMATION
  Report Type: 
  Country: None (occurrence: None)
  Receive Date: 20120511
  Receipt Date: 20120501
  Transmission Date: 20120825
  Serious: Yes (Other)
  Sender: FDA-Public Use
  Company Number: CA-ELI_LILLY_AND_COMPANY-CA201205000842

PATIENT
  Sex: Female

DRUGS (2)
  1. LANTUS [Concomitant]
     Dosage: UNK, EACH EVENING
  2. HUMALOG [Suspect]
     Dosage: UNK UNK, PRN

REACTIONS (2)
  - LEG AMPUTATION [None]
  - EYE SWELLING [None]
